FAERS Safety Report 6230468-X (Version None)
Quarter: 2009Q2

REPORT INFORMATION
  Report Type: 
  Country: None (occurrence: None)
  Receive Date: 20090611
  Receipt Date: 20090602
  Transmission Date: 20091009
  Serious: Yes (Other)
  Sender: FDA-Public Use
  Company Number: 2009AP002226

PATIENT
  Sex: Female

DRUGS (3)
  1. ZOLPIDEM TARTRATE [Suspect]
     Dosage: .5 QD; PO; .25;QD;PO.
     Route: 048
  2. ZOLPIDEM TARTRATE [Suspect]
     Dosage: .5 QD; PO; .25;QD;PO.
     Route: 048
  3. CYMBALTA [Suspect]
     Dosage: 20 MG; QD; PO
     Route: 048

REACTIONS (5)
  - BURNING SENSATION [None]
  - DYSPNOEA [None]
  - INTENTIONAL DRUG MISUSE [None]
  - MYALGIA [None]
  - PAIN IN EXTREMITY [None]
